FAERS Safety Report 8374310-X (Version None)
Quarter: 2012Q2

REPORT INFORMATION
  Report Type: 
  Country: None (occurrence: None)
  Receive Date: 20120521
  Receipt Date: 20120514
  Transmission Date: 20120825
  Serious: Yes (Other)
  Sender: FDA-Public Use
  Company Number: PHHY2012EC042511

PATIENT
  Sex: Female

DRUGS (1)
  1. EXFORGE [Suspect]
     Indication: HYPERTENSION
     Dosage: 1 DF (160/5 MG), DAILY
     Route: 048
     Dates: start: 20070101, end: 20120101

REACTIONS (5)
  - HYPOAESTHESIA [None]
  - BLOOD PRESSURE INCREASED [None]
  - PALPITATIONS [None]
  - HYPERTENSIVE CRISIS [None]
  - HEADACHE [None]
